FAERS Safety Report 22798836 (Version 4)
Quarter: 2023Q4

REPORT INFORMATION
  Report Type: Spontaneous
  Country: US (occurrence: US)
  Receive Date: 20230808
  Receipt Date: 20231011
  Transmission Date: 20240109
  Serious: No
  Sender: FDA-Public Use
  Company Number: US-PFIZER INC-202300262621

PATIENT
  Age: 68 Year
  Sex: Female
  Weight: 48.99 kg

DRUGS (2)
  1. ESTRING [Suspect]
     Active Substance: ESTRADIOL
     Indication: Menopausal symptoms
     Dosage: 2 MG, CYCLIC (EVERY 90 DAYS)
     Dates: start: 202206
  2. ESTRING [Suspect]
     Active Substance: ESTRADIOL
     Indication: Vaginal prolapse
     Dosage: 2 MG, CYCLIC (EVERY 90 DAYS)
     Dates: start: 20230711

REACTIONS (3)
  - Device breakage [Unknown]
  - Device leakage [Unknown]
  - Vaginal discharge [Recovered/Resolved]

NARRATIVE: CASE EVENT DATE: 20230726
